FAERS Safety Report 5299114-6 (Version None)
Quarter: 2007Q2

REPORT INFORMATION
  Report Type: 
  Country: None (occurrence: None)
  Receive Date: 20070411
  Receipt Date: 20070411
  Transmission Date: 20071010
  Serious: Yes (Hospitalization)
  Sender: FDA-Public Use
  Company Number: None

PATIENT
  Age: 82 Year
  Sex: Male
  Weight: 73.7 kg

DRUGS (2)
  1. LISINOPRIL [Suspect]
     Indication: HYPERTENSION
     Dosage: 80MG, 40MG BID, ORAL
     Route: 048
     Dates: start: 20060731, end: 20070117
  2. SPIRONOLACTONE [Concomitant]

REACTIONS (1)
  - HYPERKALAEMIA [None]
